FAERS Safety Report 8254690 (Version 3)
Quarter: 2013Q2

REPORT INFORMATION
  Report Type: Spontaneous
  Country: JP (occurrence: JP)
  Receive Date: 20111118
  Receipt Date: 20130614
  Transmission Date: 20140414
  Serious: Yes (Hospitalization)
  Sender: FDA-Public Use
  Company Number: JP-B.I. PHARMACEUTICALS,INC./RIDGEFIELD-2011-BP-26369NB

PATIENT
  Age: 76 Year
  Sex: Male
  Weight: 68.6 kg

DRUGS (6)
  1. PRAZAXA [Suspect]
     Indication: ATRIAL FIBRILLATION
     Dosage: 220 MG
     Route: 048
     Dates: start: 20110323
  2. LUPRAC [Concomitant]
     Dosage: 4 MG
     Route: 048
     Dates: start: 20101122
  3. VASOLAN [Concomitant]
     Dosage: 80 MG
     Route: 048
     Dates: start: 20101117
  4. SUNRYTHM [Concomitant]
     Route: 048
     Dates: start: 20101122, end: 20110926
  5. BLOPRESS [Concomitant]
     Dosage: 4 MG
     Route: 048
     Dates: start: 20110315, end: 20110530
  6. FLUITRAN [Concomitant]
     Dosage: 1 MG
     Route: 048
     Dates: start: 20110325, end: 20110620

REACTIONS (1)
  - Cerebral infarction [Recovered/Resolved]
